FAERS Safety Report 19111902 (Version 1)
Quarter: 2021Q2

REPORT INFORMATION
  Report Type: Spontaneous
  Country: US (occurrence: US)
  Receive Date: 20210408
  Receipt Date: 20210408
  Transmission Date: 20210717
  Serious: Yes (Death, Other)
  Sender: FDA-Public Use
  Company Number: US-SYMOGEN - AB-202000038

PATIENT
  Sex: Female

DRUGS (2)
  1. LEUKINE [Suspect]
     Active Substance: SARGRAMOSTIM
     Indication: PRODUCT USED FOR UNKNOWN INDICATION
     Dosage: DILUTE VIAL WITH 1 ML STERILE WATER, INJECT 160 MCG (0.64??ML) UNDER SKIN DAILY X 5 DAYS
  2. LEUKINE [Suspect]
     Active Substance: SARGRAMOSTIM
     Indication: PRODUCT USED FOR UNKNOWN INDICATION
     Dosage: DILUTE VIAL WITH 1 ML STERILE WATER, 320 MCG (1.28 ML) DAILY X 5 DAYS

REACTIONS (1)
  - Death [Fatal]
